FAERS Safety Report 12809784 (Version 1)
Quarter: 2016Q4

REPORT INFORMATION
  Report Type: Spontaneous
  Country: US (occurrence: US)
  Receive Date: 20161005
  Receipt Date: 20161005
  Transmission Date: 20170207
  Serious: No
  Sender: FDA-Public Use
  Company Number: US-BIOGEN-2016BI00299553

PATIENT
  Sex: Female

DRUGS (2)
  1. TYSABRI [Suspect]
     Active Substance: NATALIZUMAB
     Indication: MULTIPLE SCLEROSIS
     Dosage: INFUSION FOR 1 HOUR
     Route: 042
     Dates: start: 20070111, end: 20110405
  2. TYSABRI [Suspect]
     Active Substance: NATALIZUMAB
     Dosage: INFUSION FOR 1 HOUR
     Route: 042
     Dates: start: 20111215

REACTIONS (2)
  - Amnesia [Not Recovered/Not Resolved]
  - Confusional state [Not Recovered/Not Resolved]
